FAERS Safety Report 10027609 (Version 2)
Quarter: 2014Q1

REPORT INFORMATION
  Report Type: Spontaneous
  Country: US (occurrence: US)
  Receive Date: 20140321
  Receipt Date: 20140321
  Transmission Date: 20141002
  Serious: Yes (Hospitalization, Other)
  Sender: FDA-Public Use
  Company Number: US-PFIZER INC-2014053603

PATIENT
  Sex: Female

DRUGS (1)
  1. TIKOSYN [Suspect]
     Dosage: UNK

REACTIONS (12)
  - Blood pressure increased [Unknown]
  - Loss of consciousness [Unknown]
  - Feeling hot [Unknown]
  - Paraesthesia [Unknown]
  - Erythema [Unknown]
  - Tongue disorder [Unknown]
  - Feeling cold [Unknown]
  - Chills [Unknown]
  - Pain [Unknown]
  - Nausea [Unknown]
  - Malaise [Unknown]
  - Intentional drug misuse [Unknown]
